FAERS Safety Report 14198791 (Version 1)
Quarter: 2017Q4

REPORT INFORMATION
  Report Type: Spontaneous
  Country: US (occurrence: None)
  Receive Date: 20171116
  Receipt Date: 20171116
  Transmission Date: 20180321
  Serious: No
  Sender: FDA-Public Use
  Company Number: None

PATIENT
  Age: 40 Year
  Sex: Male

DRUGS (1)
  1. EPCLUSA [Suspect]
     Active Substance: SOFOSBUVIR\VELPATASVIR
     Indication: HEPATITIS C
     Dosage: 400/100MG QD ORAL?9/15/17-12/10/17
     Route: 048
     Dates: start: 20170915

REACTIONS (2)
  - Drug dose omission [None]
  - Headache [None]

NARRATIVE: CASE EVENT DATE: 20171022
